FAERS Safety Report 4749419-X (Version None)
Quarter: 2005Q3

REPORT INFORMATION
  Report Type: 
  Country: None (occurrence: None)
  Receive Date: 20050819
  Receipt Date: 20050510
  Transmission Date: 20060218
  Serious: Yes (Hospitalization, Disabling)
  Sender: FDA-Public Use
  Company Number: US-MERCK-0505USA01525

PATIENT
  Age: 29 Year
  Sex: Female
  Weight: 67 kg

DRUGS (4)
  1. VIOXX [Suspect]
     Indication: PAIN
     Route: 048
     Dates: start: 19990601, end: 20030501
  2. VIOXX [Suspect]
     Indication: ARTHRITIS
     Route: 048
     Dates: start: 19990601, end: 20030501
  3. HYZAAR [Concomitant]
     Route: 048
     Dates: start: 19990101, end: 20030101
  4. TOPROL-XL [Concomitant]
     Route: 065
     Dates: start: 19990101, end: 20030101

REACTIONS (11)
  - ABDOMINAL PAIN UPPER [None]
  - ANXIETY [None]
  - DEPRESSION [None]
  - DIZZINESS [None]
  - DYSPEPSIA [None]
  - GLAUCOMA [None]
  - HAEMORRHAGE [None]
  - HEART RATE IRREGULAR [None]
  - PAIN IN EXTREMITY [None]
  - POST-TRAUMATIC STRESS DISORDER [None]
  - RENAL FAILURE [None]
